FAERS Safety Report 17442871 (Version 2)
Quarter: 2020Q3

REPORT INFORMATION
  Report Type: Spontaneous
  Country: CA (occurrence: CA)
  Receive Date: 20200221
  Receipt Date: 20200928
  Transmission Date: 20201102
  Serious: Yes (Other)
  Sender: FDA-Public Use
  Company Number: CA-BEH-2020113503

PATIENT
  Age: 65 Year
  Sex: Male

DRUGS (5)
  1. OXYGEN. [Concomitant]
     Active Substance: OXYGEN
  2. ALBUREX [Suspect]
     Active Substance: ALBUMIN HUMAN
     Indication: VOLUME BLOOD DECREASED
     Dosage: 1/2 FRACTION, 250 ML, TOT
     Route: 065
     Dates: start: 20200128, end: 20200128
  3. LEVOPHED [Concomitant]
     Active Substance: NOREPINEPHRINE BITARTRATE
     Dosage: 2 MICROGRAM, Q1MIN
     Route: 065
     Dates: start: 20200128
  4. INSULIN [Concomitant]
     Active Substance: INSULIN NOS
     Dosage: 25U/NS 250 CC 20 CC/H
     Route: 065
  5. CORTICOSTEROID NOS [Concomitant]
     Active Substance: CORTICOSTEROID NOS
     Indication: PREMEDICATION

REACTIONS (5)
  - Anaphylactic shock [Recovered/Resolved]
  - Angioedema [Recovered/Resolved]
  - Hypotension [Recovered/Resolved]
  - Pruritus [Recovered/Resolved]
  - Somnolence [Recovered/Resolved]

NARRATIVE: CASE EVENT DATE: 20200128
